FAERS Safety Report 5475726-1 (Version None)
Quarter: 2007Q4

REPORT INFORMATION
  Report Type: 
  Country: None (occurrence: None)
  Receive Date: 20071003
  Receipt Date: 20070926
  Transmission Date: 20080405
  Serious: Yes (Hospitalization, Other)
  Sender: FDA-Public Use
  Company Number: US-ASTRAZENECA-2007AC01852

PATIENT
  Age: 30 Year
  Sex: Male

DRUGS (14)
  1. QUETIAPINE FUMARATE [Suspect]
     Route: 048
  2. QUETIAPINE FUMARATE [Suspect]
     Route: 048
  3. QUETIAPINE FUMARATE [Suspect]
     Route: 048
  4. ENALAPRIL MALEATE [Concomitant]
  5. NPH INSULIN [Concomitant]
  6. REGULAR INSULIN [Concomitant]
  7. LITHIUM [Concomitant]
  8. LITHIUM [Concomitant]
     Dosage: 900MG EACH MORNING AND 1200 MG AT NIGHT
  9. ALPRAZOLAM [Concomitant]
     Indication: AGITATION
  10. ALPRAZOLAM [Concomitant]
     Indication: ANXIETY
  11. ZIPRASIDONE HCL [Concomitant]
  12. ZIPRASIDONE HCL [Concomitant]
  13. OLANZAPINE [Concomitant]
  14. OLANZAPINE [Concomitant]

REACTIONS (1)
  - HEPATIC FAILURE [None]
